FAERS Safety Report 16693747 (Version 1)
Quarter: 2019Q3

REPORT INFORMATION
  Report Type: Spontaneous
  Country: CA (occurrence: CA)
  Receive Date: 20190812
  Receipt Date: 20190812
  Transmission Date: 20191004
  Serious: Yes (Life-Threatening, Hospitalization, Other)
  Sender: FDA-Public Use
  Company Number: CA-TEVA-2019-CA-1088986

PATIENT
  Age: 6 Year
  Sex: Male
  Weight: 22 kg

DRUGS (12)
  1. CYCLOPHOSPHAMIDE. [Concomitant]
     Active Substance: CYCLOPHOSPHAMIDE
  2. CYTARABINE INJECTION [Concomitant]
     Active Substance: CYTARABINE
  3. PREDNISONE. [Concomitant]
     Active Substance: PREDNISONE
  4. ATRIANCE [Concomitant]
     Active Substance: NELARABINE
  5. FLUDARABINE [Concomitant]
     Active Substance: FLUDARABINE PHOSPHATE
  6. L-ASPARAGINASE [Concomitant]
     Active Substance: ASPARAGINASE
  7. VINCRISTINE SULFATE. [Suspect]
     Active Substance: VINCRISTINE SULFATE
     Indication: ACUTE LYMPHOCYTIC LEUKAEMIA
     Route: 042
  8. DEXAMETHASONE. [Concomitant]
     Active Substance: DEXAMETHASONE
  9. DOXORUBICIN HYDROCHLORIDE INJECTION [Concomitant]
     Active Substance: DOXORUBICIN HYDROCHLORIDE
  10. METHOTREXATE INJECTION, USP [Suspect]
     Active Substance: METHOTREXATE
     Indication: ACUTE LYMPHOCYTIC LEUKAEMIA
     Route: 042
  11. CLOFARABINE. [Concomitant]
     Active Substance: CLOFARABINE
  12. ETOPOSIDE. [Concomitant]
     Active Substance: ETOPOSIDE

REACTIONS (2)
  - Petit mal epilepsy [Recovering/Resolving]
  - Seizure [Recovering/Resolving]
